FAERS Safety Report 5651797-4 (Version None)
Quarter: 2008Q1

REPORT INFORMATION
  Report Type: 
  Country: None (occurrence: None)
  Receive Date: 20080131
  Receipt Date: 20071116
  Transmission Date: 20080703
  Serious: No
  Sender: FDA-Public Use
  Company Number: US200711004315

PATIENT
  Age: 61 Year
  Sex: Female

DRUGS (4)
  1. BYETTA [Suspect]
     Indication: TYPE 2 DIABETES MELLITUS
     Dosage: 5 UG, 2/D, SUBCUTANEOUS ; 10 UG, 2/D, SUBCUTANEOUS
     Route: 058
     Dates: start: 20070801, end: 20071001
  2. BYETTA [Suspect]
     Indication: TYPE 2 DIABETES MELLITUS
     Dosage: 5 UG, 2/D, SUBCUTANEOUS ; 10 UG, 2/D, SUBCUTANEOUS
     Route: 058
     Dates: start: 20071001
  3. METFORMIN HCL [Concomitant]
  4. ACTOS /USA/ (PIOGLITAZONE HYDRCHLORIDE) [Concomitant]

REACTIONS (8)
  - BACK PAIN [None]
  - BRADYPHRENIA [None]
  - COUGH [None]
  - DISTURBANCE IN ATTENTION [None]
  - FATIGUE [None]
  - NASOPHARYNGITIS [None]
  - PULMONARY CONGESTION [None]
  - SNEEZING [None]
